APPROVED DRUG PRODUCT: DEFLAZACORT
Active Ingredient: DEFLAZACORT
Strength: 18MG
Dosage Form/Route: TABLET;ORAL
Application: A216720 | Product #002 | TE Code: AB
Applicant: UPSHER SMITH LABORATORIES LLC
Approved: Nov 5, 2024 | RLD: No | RS: No | Type: RX